FAERS Safety Report 13544842 (Version 2)
Quarter: 2019Q3

REPORT INFORMATION
  Report Type: Spontaneous
  Country: US (occurrence: US)
  Receive Date: 20170515
  Receipt Date: 20190807
  Transmission Date: 20191004
  Serious: Yes (Other)
  Sender: FDA-Public Use
  Company Number: US-BRISTOL-MYERS SQUIBB COMPANY-BMS-2017-041830

PATIENT
  Sex: Female
  Weight: 58.96 kg

DRUGS (1)
  1. KENALOG-40 [Suspect]
     Active Substance: TRIAMCINOLONE ACETONIDE
     Indication: DERMATITIS CONTACT
     Dosage: ONCE
     Route: 030
     Dates: start: 20160821

REACTIONS (9)
  - Liver disorder [Unknown]
  - Systemic mycosis [Unknown]
  - Malaise [Unknown]
  - Pyrexia [Unknown]
  - Urinary tract infection [Unknown]
  - Injection site atrophy [Unknown]
  - Injection site pain [Unknown]
  - Acarodermatitis [Unknown]
  - Tooth loss [Unknown]
